FAERS Safety Report 14299645 (Version 3)
Quarter: 2018Q1

REPORT INFORMATION
  Report Type: Report from Study
  Country: None (occurrence: HU)
  Receive Date: 20171219
  Receipt Date: 20180307
  Transmission Date: 20180509
  Serious: Yes (Death, Hospitalization)
  Sender: FDA-Public Use
  Company Number: HU-CLOVIS-2017-0338-0163

PATIENT
  Age: 67 Year
  Sex: Female
  Weight: 55.7 kg

DRUGS (4)
  1. CO-338 [Suspect]
     Active Substance: RUCAPARIB
     Route: 048
     Dates: start: 20171202, end: 20171206
  2. CO-338 [Suspect]
     Active Substance: RUCAPARIB
     Indication: VAGINAL CANCER
     Route: 048
     Dates: start: 20171109, end: 20171202
  3. ZOLEDRONIC ACID. [Concomitant]
     Active Substance: ZOLEDRONIC ACID
     Indication: METASTASES TO BONE
     Dates: start: 20170906
  4. METHYLPREDNISOLONE. [Concomitant]
     Active Substance: METHYLPREDNISOLONE
     Indication: PNEUMONITIS
     Route: 048
     Dates: start: 20171206, end: 20171211

REACTIONS (1)
  - Pneumonitis [Fatal]

NARRATIVE: CASE EVENT DATE: 20171211
